FAERS Safety Report 16540588 (Version 1)
Quarter: 2019Q3

REPORT INFORMATION
  Report Type: Spontaneous
  Country: US (occurrence: US)
  Receive Date: 20190707
  Receipt Date: 20190707
  Transmission Date: 20191004
  Serious: No
  Sender: FDA-Public Use
  Company Number: None

PATIENT
  Sex: Female
  Weight: 103.5 kg

DRUGS (2)
  1. EQUATE EYE ALLERGY RELIEF DROPS [Suspect]
     Active Substance: NAPHAZOLINE HYDROCHLORIDE\PHENIRAMINE MALEATE
     Indication: EYE IRRITATION
     Dosage: ?          QUANTITY:2 DROP(S);?
     Route: 047
     Dates: start: 20190601, end: 20190612
  2. EQUATE EYE ALLERGY RELIEF DROPS [Suspect]
     Active Substance: NAPHAZOLINE HYDROCHLORIDE\PHENIRAMINE MALEATE
     Indication: DRY EYE
     Dosage: ?          QUANTITY:2 DROP(S);?
     Route: 047
     Dates: start: 20190601, end: 20190612

REACTIONS (3)
  - Instillation site pain [None]
  - Eye irritation [None]
  - Lacrimation increased [None]
